FAERS Safety Report 9379379 (Version 1)
Quarter: 2013Q3

REPORT INFORMATION
  Report Type: Other
  Country: US (occurrence: US)
  Receive Date: 20130702
  Receipt Date: 20130702
  Transmission Date: 20140515
  Serious: Yes (Death)
  Sender: FDA-Public Use
  Company Number: US-SHIRE-ALL1-2013-04420

PATIENT
  Age: 80 Year
  Sex: Female

DRUGS (1)
  1. FOSRENOL [Suspect]
     Indication: BLOOD PHOSPHORUS INCREASED
     Dosage: 1,000 MG(TAKES4 TABS DAILY)
     Route: 048
     Dates: start: 2013

REACTIONS (1)
  - Death [Fatal]
